FAERS Safety Report 17599006 (Version 2)
Quarter: 2020Q2

REPORT INFORMATION
  Report Type: Spontaneous
  Country: GR (occurrence: GR)
  Receive Date: 20200330
  Receipt Date: 20200401
  Transmission Date: 20200713
  Serious: Yes (Other)
  Sender: FDA-Public Use
  Company Number: GR-PFIZER INC-2020131224

PATIENT
  Sex: Male

DRUGS (3)
  1. CONTROLOC [Suspect]
     Active Substance: PANTOPRAZOLE SODIUM
     Dosage: 1 DF, UNK
     Route: 065
     Dates: start: 20200313
  2. CONTROLOC [Suspect]
     Active Substance: PANTOPRAZOLE SODIUM
     Dosage: UNK
     Route: 065
  3. ACETYLSALICYLIC ACID [Concomitant]
     Active Substance: ASPIRIN
     Dosage: UNK

REACTIONS (1)
  - Arrhythmia [Unknown]
